FAERS Safety Report 22246775 (Version 1)
Quarter: 2023Q2

REPORT INFORMATION
  Report Type: Spontaneous
  Country: GB (occurrence: GB)
  Receive Date: 20230424
  Receipt Date: 20230424
  Transmission Date: 20230721
  Serious: Yes (Other)
  Sender: FDA-Public Use
  Company Number: GB-MHRA-MED-202304131118231690-KTPZC

PATIENT
  Sex: Female

DRUGS (1)
  1. CARBOPLATIN [Suspect]
     Active Substance: CARBOPLATIN
     Indication: Neoplasm malignant
     Dosage: 445MG;
     Route: 065
     Dates: end: 20230314

REACTIONS (3)
  - Chest pain [Recovered/Resolved]
  - Dyspnoea [Recovered/Resolved]
  - Somnolence [Recovered/Resolved]

NARRATIVE: CASE EVENT DATE: 20230314
